FAERS Safety Report 16468642 (Version 1)
Quarter: 2019Q2

REPORT INFORMATION
  Report Type: Spontaneous
  Country: US (occurrence: US)
  Receive Date: 20190624
  Receipt Date: 20190624
  Transmission Date: 20190711
  Serious: Yes (Other)
  Sender: FDA-Public Use
  Company Number: US-HIKMA PHARMACEUTICALS USA INC.-US-H14001-19-03988

PATIENT

DRUGS (1)
  1. ROPINIROLE HYDROCHLORIDE. [Suspect]
     Active Substance: ROPINIROLE HYDROCHLORIDE
     Indication: PRODUCT USED FOR UNKNOWN INDICATION
     Route: 065

REACTIONS (7)
  - Obstructive airways disorder [Unknown]
  - Paranasal sinus discomfort [Unknown]
  - Drug hypersensitivity [Unknown]
  - Swelling [Unknown]
  - Lacrimation increased [Unknown]
  - Somnolence [Unknown]
  - Dizziness [Unknown]
